FAERS Safety Report 4385102-0 (Version None)
Quarter: 2004Q2

REPORT INFORMATION
  Report Type: 
  Country: None (occurrence: None)
  Receive Date: 20040625
  Receipt Date: 20040618
  Transmission Date: 20050107
  Serious: Yes (Hospitalization)
  Sender: FDA-Public Use
  Company Number: FR-BRISTOL-MYERS SQUIBB COMPANY-12618468

PATIENT
  Age: 88 Year
  Sex: Female

DRUGS (3)
  1. COUMADIN [Suspect]
     Indication: CEREBRAL THROMBOSIS
     Dosage: 2MG TABLET, 4MG PER DAY
     Route: 048
  2. SECTRAL [Suspect]
     Indication: ATRIAL FIBRILLATION
     Dosage: DRUG STOPPED ON 12-SEP-2002 + THEN RESTARTED ON UNKNOWN DATE.
     Route: 048
  3. SECTRAL [Suspect]
     Indication: ATRIAL FLUTTER
     Dosage: DRUG STOPPED ON 12-SEP-2002 + THEN RESTARTED ON UNKNOWN DATE.
     Route: 048

REACTIONS (3)
  - ASTHENIA [None]
  - BLOOD PRESSURE SYSTOLIC INCREASED [None]
  - SINUS BRADYCARDIA [None]
